FAERS Safety Report 9180143 (Version 1)
Quarter: 2013Q1

REPORT INFORMATION
  Report Type: Spontaneous
  Country: US (occurrence: US)
  Receive Date: 20130321
  Receipt Date: 20130321
  Transmission Date: 20140127
  Serious: No
  Sender: FDA-Public Use
  Company Number: US-009507513-1303USA006926

PATIENT
  Sex: 0

DRUGS (1)
  1. ZIOPTAN [Suspect]
     Dosage: UNK
     Route: 047
     Dates: start: 201302

REACTIONS (5)
  - Rhinorrhoea [Recovered/Resolved]
  - Dysgeusia [Recovered/Resolved]
  - Erythema [Recovered/Resolved]
  - Burning sensation [Recovered/Resolved]
  - Skin exfoliation [Recovered/Resolved]
